FAERS Safety Report 7339039-5 (Version None)
Quarter: 2011Q1

REPORT INFORMATION
  Report Type: 
  Country: None (occurrence: None)
  Receive Date: 20110308
  Receipt Date: 20110223
  Transmission Date: 20110831
  Serious: Yes (Death, Hospitalization, Other)
  Sender: FDA-Public Use
  Company Number: JP-ELI_LILLY_AND_COMPANY-JP201102006115

PATIENT
  Age: 76 Year
  Sex: Male
  Weight: 40.5 kg

DRUGS (9)
  1. PANCREAZE [Concomitant]
     Route: 048
  2. HUMALOG [Concomitant]
     Route: 058
  3. DUROTEP [Concomitant]
     Route: 023
  4. OPSO [Concomitant]
     Route: 048
  5. RACOL [Concomitant]
  6. HYPEN [Concomitant]
     Route: 048
  7. GEMZAR [Suspect]
     Indication: PANCREATIC CARCINOMA
     Dosage: 1400 MG, UNK
     Route: 042
     Dates: start: 20100811, end: 20101108
  8. FEROTYM [Concomitant]
     Route: 048
  9. HUMALOG [Concomitant]
     Route: 058

REACTIONS (9)
  - GASTRIC ULCER HAEMORRHAGE [None]
  - WHITE BLOOD CELL COUNT DECREASED [None]
  - DISSEMINATED INTRAVASCULAR COAGULATION [None]
  - PNEUMONIA [None]
  - GASTROINTESTINAL HAEMORRHAGE [None]
  - RENAL IMPAIRMENT [None]
  - HAEMOGLOBIN DECREASED [None]
  - ACUTE HEPATIC FAILURE [None]
  - RESPIRATORY ACIDOSIS [None]
